FAERS Safety Report 8051347-1 (Version None)
Quarter: 2012Q1

REPORT INFORMATION
  Report Type: 
  Country: None (occurrence: None)
  Receive Date: 20120117
  Receipt Date: 20120111
  Transmission Date: 20120608
  Serious: Yes (Hospitalization)
  Sender: FDA-Public Use
  Company Number: US-ROCHE-1030261

PATIENT
  Sex: Female

DRUGS (7)
  1. ALBUTEROL [Concomitant]
  2. OMALIZUMAB [Suspect]
     Indication: ASTHMA
     Dosage: 2 INJECTIONS
     Route: 058
     Dates: start: 20111001, end: 20111015
  3. ALLEGRA [Concomitant]
  4. ADVAIR DISKUS 100/50 [Concomitant]
  5. ATIVAN [Concomitant]
  6. PREVACID [Concomitant]
  7. ZOLOFT [Concomitant]

REACTIONS (3)
  - HEADACHE [None]
  - PRURITUS GENERALISED [None]
  - DYSPNOEA [None]
